FAERS Safety Report 12972264 (Version 2)
Quarter: 2017Q1

REPORT INFORMATION
  Report Type: Report from Study
  Country: FR (occurrence: FR)
  Receive Date: 20161124
  Receipt Date: 20170106
  Transmission Date: 20170428
  Serious: Yes (Other)
  Sender: FDA-Public Use
  Company Number: FR-ACTELION-A-CH2016-145687

PATIENT
  Age: 72 Year
  Sex: Male
  Weight: 80 kg

DRUGS (7)
  1. VALCHLOR [Suspect]
     Active Substance: MECHLORETHAMINE
     Indication: MYCOSIS FUNGOIDES STAGE I
     Dosage: UNK
     Route: 061
     Dates: start: 20161026, end: 20161113
  2. PLAVIX [Concomitant]
     Active Substance: CLOPIDOGREL BISULFATE
     Dosage: UNK, QD
  3. DUOPLAVIN [Concomitant]
     Active Substance: ASPIRIN\CLOPIDOGREL
     Dosage: UNK, QD
  4. LYRICA [Concomitant]
     Active Substance: PREGABALIN
     Dosage: UNK, QD
  5. TEMERIT [Concomitant]
     Active Substance: NEBIVOLOL
  6. KARDEGIC [Concomitant]
     Active Substance: ASPIRIN LYSINE
     Dosage: UNK, QD
  7. MOPRAL [Concomitant]
     Active Substance: OMEPRAZOLE SODIUM
     Dosage: UNK, QD

REACTIONS (2)
  - Administration site erythema [Not Recovered/Not Resolved]
  - Administration site erosion [Not Recovered/Not Resolved]
